FAERS Safety Report 22841092 (Version 6)
Quarter: 2023Q4

REPORT INFORMATION
  Report Type: Spontaneous
  Country: IT (occurrence: IT)
  Receive Date: 20230820
  Receipt Date: 20231011
  Transmission Date: 20240110
  Serious: Yes (Hospitalization, Other)
  Sender: FDA-Public Use
  Company Number: IT-AUROBINDO-AUR-APL-2023-052893

PATIENT
  Age: 84 Year
  Sex: Female

DRUGS (14)
  1. CLOPIDOGREL [Suspect]
     Active Substance: CLOPIDOGREL BISULFATE
     Indication: Atrial fibrillation
     Dosage: 600 MILLIGRAM, 1 TOTAL
     Route: 065
  2. CLOPIDOGREL [Suspect]
     Active Substance: CLOPIDOGREL BISULFATE
     Indication: Vascular stent thrombosis
  3. CLOPIDOGREL [Suspect]
     Active Substance: CLOPIDOGREL BISULFATE
     Indication: Acute myocardial infarction
  4. CLOPIDOGREL [Suspect]
     Active Substance: CLOPIDOGREL BISULFATE
     Indication: Anticoagulant therapy
  5. ASPIRIN [Suspect]
     Active Substance: ASPIRIN
     Indication: Atrial fibrillation
     Dosage: 250 MILLIGRAM, 1 TOTAL LOADING DOSE
     Route: 065
  6. ASPIRIN [Suspect]
     Active Substance: ASPIRIN
     Indication: Acute myocardial infarction
  7. ASPIRIN [Suspect]
     Active Substance: ASPIRIN
     Indication: Vascular stent thrombosis
  8. ASPIRIN [Suspect]
     Active Substance: ASPIRIN
     Indication: Anticoagulant therapy
  9. APIXABAN [Suspect]
     Active Substance: APIXABAN
     Indication: Atrial fibrillation
     Dosage: 5 MILLIGRAM, ONCE A DAY
     Route: 065
  10. APIXABAN [Suspect]
     Active Substance: APIXABAN
     Indication: Anticoagulant therapy
     Dosage: 2.5 MILLIGRAM, ONCE A DAY (REDUCED DOSE)
     Route: 065
  11. ENOXAPARIN [Suspect]
     Active Substance: ENOXAPARIN
     Indication: Vascular stent thrombosis
     Dosage: 4000 INTERNATIONAL UNIT, ONCE A DAY
     Route: 065
  12. WARFARIN [Suspect]
     Active Substance: WARFARIN
     Indication: Vascular stent thrombosis
     Dosage: UNK
     Route: 065
  13. WARFARIN [Suspect]
     Active Substance: WARFARIN
     Indication: Anticoagulant therapy
  14. WARFARIN [Suspect]
     Active Substance: WARFARIN
     Indication: Thrombosis prophylaxis

REACTIONS (7)
  - Melaena [Recovered/Resolved]
  - Rectal haemorrhage [Recovered/Resolved]
  - Small intestinal haemorrhage [Recovered/Resolved]
  - Intestinal haemorrhage [Unknown]
  - Anaemia [Recovered/Resolved]
  - Angiodysplasia [Recovered/Resolved]
  - Heyde^s syndrome [Recovered/Resolved]
